FAERS Safety Report 10077593 (Version 1)
Quarter: 2014Q2

REPORT INFORMATION
  Report Type: Spontaneous
  Country: US (occurrence: US)
  Receive Date: 20140414
  Receipt Date: 20140414
  Transmission Date: 20141212
  Serious: No
  Sender: FDA-Public Use
  Company Number: US-BANPHARM-20131934

PATIENT
  Age: 71 Year
  Sex: Female
  Weight: 77.1 kg

DRUGS (3)
  1. NAPROXEN SODIUM 220 MG [Suspect]
     Indication: ARTHRITIS
     Dosage: 220 MG, BID,
     Route: 048
     Dates: start: 20131119, end: 20131203
  2. BAYER ASPIRIN [Concomitant]
     Dates: start: 2005
  3. ACIPHEX [Concomitant]
     Dates: start: 2008

REACTIONS (1)
  - Drug ineffective [Unknown]
